FAERS Safety Report 5595475-9 (Version None)
Quarter: 2007Q4

REPORT INFORMATION
  Report Type: 
  Country: None (occurrence: None)
  Receive Date: 20071218
  Receipt Date: 20071001
  Transmission Date: 20080405
  Serious: Yes (Other)
  Sender: FDA-Public Use
  Company Number: 2007059240

PATIENT
  Age: 54 Year
  Sex: Male
  Weight: 85.3 kg

DRUGS (3)
  1. BEXTRA [Suspect]
     Indication: OSTEOARTHRITIS
     Dosage: 10 MG (10 MG, 1 IN 1 D)
     Dates: start: 20030829
  2. LISINOPRIL [Concomitant]
  3. BETAPACE [Concomitant]

REACTIONS (3)
  - CARDIAC FAILURE CONGESTIVE [None]
  - DEPRESSION [None]
  - NAUSEA [None]
